FAERS Safety Report 17001482 (Version 1)
Quarter: 2019Q4

REPORT INFORMATION
  Report Type: Spontaneous
  Country: US (occurrence: US)
  Receive Date: 20191106
  Receipt Date: 20191106
  Transmission Date: 20200122
  Serious: Yes (Hospitalization, Disabling)
  Sender: FDA-Public Use
  Company Number: US-HIKMA PHARMACEUTICALS USA INC.-US-H14001-19-05583

PATIENT

DRUGS (2)
  1. 2-CHLOROPROCAINE [Suspect]
     Active Substance: CHLOROPROCAINE
     Indication: PLASTIC SURGERY
     Route: 065
  2. LIDOCAINE. [Suspect]
     Active Substance: LIDOCAINE
     Indication: PLASTIC SURGERY
     Route: 065

REACTIONS (1)
  - Cauda equina syndrome [Recovered/Resolved with Sequelae]
